FAERS Safety Report 24942569 (Version 5)
Quarter: 2025Q3

REPORT INFORMATION
  Report Type: Spontaneous
  Country: US (occurrence: US)
  Receive Date: 20250207
  Receipt Date: 20250827
  Transmission Date: 20251021
  Serious: No
  Sender: SANOFI AVENTIS
  Company Number: US-SA-2025SA037394

PATIENT
  Age: 25 Year
  Sex: Female

DRUGS (2)
  1. DUPIXENT [Suspect]
     Active Substance: DUPILUMAB
     Indication: Dermatitis atopic
     Dosage: 300 MG, QOW
     Route: 058
     Dates: start: 20241120
  2. VITAMIN D NOS [Concomitant]
     Active Substance: CHOLECALCIFEROL\ERGOCALCIFEROL

REACTIONS (9)
  - Infection [Not Recovered/Not Resolved]
  - Nausea [Unknown]
  - Sinusitis [Not Recovered/Not Resolved]
  - Rash [Recovering/Resolving]
  - Discomfort [Not Recovered/Not Resolved]
  - Sleep disorder due to a general medical condition [Recovered/Resolved]
  - Dermatitis atopic [Unknown]
  - Therapeutic response decreased [Unknown]
  - Product dose omission in error [Unknown]

NARRATIVE: CASE EVENT DATE: 20250101
